FAERS Safety Report 7328603-5 (Version None)
Quarter: 2011Q1

REPORT INFORMATION
  Report Type: 
  Country: None (occurrence: None)
  Receive Date: 20110225
  Receipt Date: 20110225
  Transmission Date: 20110831
  Serious: Yes (Hospitalization)
  Sender: FDA-Public Use
  Company Number: None

PATIENT
  Sex: Female
  Weight: 111 kg

DRUGS (1)
  1. EXEMESTANE [Suspect]
     Indication: BREAST CANCER METASTATIC
     Dosage: 25 MG DAILY PO 14/21 DAY
     Route: 048
     Dates: start: 20100914, end: 20110221

REACTIONS (4)
  - NO THERAPEUTIC RESPONSE [None]
  - CELLULITIS [None]
  - SUBCUTANEOUS ABSCESS [None]
  - POSTOPERATIVE WOUND COMPLICATION [None]
